FAERS Safety Report 7267281-0 (Version None)
Quarter: 2011Q1

REPORT INFORMATION
  Report Type: 
  Country: None (occurrence: None)
  Receive Date: 20110201
  Receipt Date: 20110125
  Transmission Date: 20110831
  Serious: Yes (Hospitalization)
  Sender: FDA-Public Use
  Company Number: US-SANOFI-AVENTIS-2010SA068760

PATIENT
  Age: 73 Year
  Sex: Male

DRUGS (7)
  1. MULTAQ [Suspect]
     Indication: CORONARY ARTERY DISEASE
     Route: 048
     Dates: start: 20100811, end: 20101030
  2. COUMADIN [Concomitant]
     Indication: ATRIAL FIBRILLATION
  3. MULTAQ [Suspect]
     Indication: ATRIAL FIBRILLATION
     Route: 048
     Dates: start: 20100811, end: 20101030
  4. LABETALOL HCL [Concomitant]
     Indication: BLOOD PRESSURE
     Route: 048
     Dates: end: 20100922
  5. NORVASC [Concomitant]
     Indication: BLOOD PRESSURE
  6. SIMVASTATIN [Concomitant]
  7. LISINOPRIL [Concomitant]
     Indication: BLOOD PRESSURE
     Route: 048

REACTIONS (3)
  - CARDIAC ARREST [None]
  - HYPOXIC-ISCHAEMIC ENCEPHALOPATHY [None]
  - VENTRICULAR TACHYCARDIA [None]
